FAERS Safety Report 6494140-3 (Version None)
Quarter: 2009Q4

REPORT INFORMATION
  Report Type: 
  Country: None (occurrence: None)
  Receive Date: 20091214
  Receipt Date: 20090204
  Transmission Date: 20100525
  Serious: No
  Sender: FDA-Public Use
  Company Number: US-BRISTOL-MYERS SQUIBB COMPANY-14465512

PATIENT
  Age: 17 Year
  Sex: Female

DRUGS (4)
  1. ABILIFY [Suspect]
     Indication: BIPOLAR DISORDER
     Route: 048
  2. ADDERALL XR 10 [Concomitant]
     Dosage: 1DF=30(UNITS NOT MENTIONED)
  3. LAMICTAL [Concomitant]
     Dosage: 1DF=150(UNITS NOT MENTIONED).
  4. ATIVAN [Concomitant]
     Dosage: FORMULATION: INJ

REACTIONS (1)
  - WEIGHT INCREASED [None]
